FAERS Safety Report 4554595-8 (Version None)
Quarter: 2004Q4

REPORT INFORMATION
  Report Type: 
  Country: None (occurrence: None)
  Receive Date: 20041227
  Receipt Date: 20040921
  Transmission Date: 20050328
  Serious: Yes (Hospitalization)
  Sender: FDA-Public Use
  Company Number: US093340

PATIENT
  Age: 75 Year
  Sex: Male
  Weight: 75.8 kg

DRUGS (7)
  1. ARANESP [Suspect]
     Indication: RENAL FAILURE CHRONIC
     Dosage: 25 MCG, 1 IN 1, SC
     Route: 058
     Dates: start: 20020521, end: 20020521
  2. ALLOPURINOL [Concomitant]
  3. DIAZEPAM [Concomitant]
  4. UREA CREAM [Concomitant]
  5. PHOSLO [Concomitant]
  6. PREDNISONE [Concomitant]
  7. MEPERGAN [Concomitant]

REACTIONS (10)
  - CONFUSIONAL STATE [None]
  - DEHYDRATION [None]
  - FATIGUE [None]
  - HYPERSENSITIVITY [None]
  - RASH GENERALISED [None]
  - RASH MACULO-PAPULAR [None]
  - RENAL FAILURE ACUTE [None]
  - RENAL TUBULAR ACIDOSIS [None]
  - SKIN DESQUAMATION [None]
  - URTICARIA [None]
